FAERS Safety Report 4968372-7 (Version None)
Quarter: 2006Q1

REPORT INFORMATION
  Report Type: 
  Country: None (occurrence: None)
  Receive Date: 20060201
  Receipt Date: 20051229
  Transmission Date: 20060701
  Serious: No
  Sender: FDA-Public Use
  Company Number: 2005PV006397

PATIENT
  Age: 61 Year
  Sex: Female
  Weight: 127.9144 kg

DRUGS (2)
  1. BYETTA [Suspect]
     Dosage: SEE IMAGE
     Route: 058
     Dates: start: 20051025, end: 20051122
  2. BYETTA [Suspect]
     Dosage: SEE IMAGE
     Route: 058
     Dates: start: 20051123, end: 20051223

REACTIONS (3)
  - EYELID OEDEMA [None]
  - RASH [None]
  - WEIGHT DECREASED [None]
